FAERS Safety Report 16735581 (Version 6)
Quarter: 2021Q2

REPORT INFORMATION
  Report Type: Spontaneous
  Country: FR (occurrence: FR)
  Receive Date: 20190823
  Receipt Date: 20210521
  Transmission Date: 20210716
  Serious: Yes (Life-Threatening, Hospitalization, Disabling, Other)
  Sender: FDA-Public Use
  Company Number: PHHY2019FR194023

PATIENT
  Age: 66 Year
  Sex: Male
  Weight: 76 kg

DRUGS (21)
  1. VORICONAZOLE. [Suspect]
     Active Substance: VORICONAZOLE
     Dosage: 8 MG/KG, Q12H
     Route: 042
     Dates: start: 20180719
  2. VORICONAZOLE. [Suspect]
     Active Substance: VORICONAZOLE
     Indication: TRICHOSPORON INFECTION
     Dosage: 12 MG/KG, Q12H
     Route: 042
     Dates: start: 20180718
  3. VORICONAZOLE. [Suspect]
     Active Substance: VORICONAZOLE
     Dosage: 6 MG/KG, Q12H
     Route: 042
     Dates: start: 20180718, end: 20180719
  4. AMBISOME [Suspect]
     Active Substance: AMPHOTERICIN B
     Indication: TRICHOSPORON INFECTION
     Dosage: 3 MG/KG, DAILY (LIPOSOMAL FORM)
     Route: 042
     Dates: start: 20180718, end: 20180828
  5. AMPHOTERICIN B LIPID COMPLEX [Concomitant]
     Active Substance: AMPHOTERICIN B
     Indication: TRICHOSPORON INFECTION
     Dosage: 3 MG/KG
     Route: 016
  6. VORICONAZOLE. [Suspect]
     Active Substance: VORICONAZOLE
     Dosage: 2 MG/KG, Q12H
     Route: 042
     Dates: start: 20180726, end: 20180801
  7. BLINATUMOMAB [Suspect]
     Active Substance: BLINATUMOMAB
     Indication: B PRECURSOR TYPE ACUTE LEUKAEMIA
  8. CASPOFUNGIN [Concomitant]
     Active Substance: CASPOFUNGIN
     Indication: FUNGAL INFECTION
     Dosage: UNK
     Route: 065
  9. BORTEZOMIB. [Suspect]
     Active Substance: BORTEZOMIB
     Indication: PLASMA CELL MYELOMA
     Dosage: UNK
     Route: 065
  10. AMBISOME [Suspect]
     Active Substance: AMPHOTERICIN B
     Indication: FUNGAEMIA
  11. BLINATUMOMAB [Suspect]
     Active Substance: BLINATUMOMAB
     Indication: B-CELL TYPE ACUTE LEUKAEMIA
     Dosage: UNK, CYCLIC
     Route: 065
     Dates: start: 201806, end: 20180718
  12. MELPHALAN. [Suspect]
     Active Substance: MELPHALAN
     Indication: PLASMA CELL MYELOMA
     Dosage: UNK
     Route: 065
  13. BLINATUMOMAB [Suspect]
     Active Substance: BLINATUMOMAB
     Indication: ACUTE LYMPHOCYTIC LEUKAEMIA
  14. BLINATUMOMAB [Suspect]
     Active Substance: BLINATUMOMAB
     Indication: PANCYTOPENIA
  15. CASPOFUNGIN [Concomitant]
     Active Substance: CASPOFUNGIN
     Indication: EVIDENCE BASED TREATMENT
  16. CASPOFUNGIN [Concomitant]
     Active Substance: CASPOFUNGIN
     Indication: FEBRILE NEUTROPENIA
  17. CASPOFUNGIN [Concomitant]
     Active Substance: CASPOFUNGIN
     Indication: TRICHOSPORON INFECTION
  18. LENALIDOMIDE [Concomitant]
     Active Substance: LENALIDOMIDE
     Indication: PLASMA CELL MYELOMA
     Dosage: UNK (33 CYCLES)
     Route: 065
  19. MUROMONAB?CD3 [Concomitant]
     Active Substance: MUROMONAB-CD3
     Indication: B-CELL TYPE ACUTE LEUKAEMIA
     Dosage: UNK
     Route: 065
  20. VORICONAZOLE. [Suspect]
     Active Substance: VORICONAZOLE
     Dosage: 4 MG/KG, Q12H
     Route: 042
     Dates: start: 20180719, end: 20180726
  21. DEXAMETHASONE. [Suspect]
     Active Substance: DEXAMETHASONE
     Indication: PLASMA CELL MYELOMA
     Dosage: UNK
     Route: 065

REACTIONS (15)
  - Drug level increased [Recovered/Resolved]
  - Nervous system disorder [Recovered/Resolved]
  - Neurological symptom [Recovered/Resolved]
  - Leukopenia [Recovered/Resolved]
  - Rash erythematous [Recovered/Resolved]
  - Product use in unapproved indication [Unknown]
  - Hallucination [Recovered/Resolved]
  - White blood cell count increased [Unknown]
  - Trichosporon infection [Recovered/Resolved]
  - Acute lymphocytic leukaemia [Recovered/Resolved]
  - Fungaemia [Recovered/Resolved]
  - Acute biphenotypic leukaemia [Recovered/Resolved]
  - Immunosuppression [Recovered/Resolved]
  - Febrile neutropenia [Recovered/Resolved]
  - Neurotoxicity [Unknown]

NARRATIVE: CASE EVENT DATE: 201503
